FAERS Safety Report 17589185 (Version 1)
Quarter: 2020Q1

REPORT INFORMATION
  Report Type: Spontaneous
  Country: US (occurrence: US)
  Receive Date: 20200327
  Receipt Date: 20200327
  Transmission Date: 20200409
  Serious: No
  Sender: FDA-Public Use
  Company Number: US-ALLERGAN-1915092US

PATIENT
  Sex: Female

DRUGS (1)
  1. LATISSE [Suspect]
     Active Substance: BIMATOPROST
     Indication: PRODUCT USED FOR UNKNOWN INDICATION
     Dosage: UNK
     Route: 061
     Dates: start: 201903, end: 20190401

REACTIONS (7)
  - Eye pruritus [Recovered/Resolved]
  - Eyelid irritation [Unknown]
  - Application site vesicles [Recovering/Resolving]
  - Eye swelling [Unknown]
  - Ocular hyperaemia [Unknown]
  - Application site urticaria [Unknown]
  - Eyelids pruritus [Unknown]
